FAERS Safety Report 13153577 (Version 1)
Quarter: 2017Q1

REPORT INFORMATION
  Report Type: Spontaneous
  Country: RU (occurrence: RU)
  Receive Date: 20170126
  Receipt Date: 20170126
  Transmission Date: 20170428
  Serious: Yes (Other)
  Sender: FDA-Public Use
  Company Number: RU-ARBOR PHARMACEUTICALS, LLC-RU-2017ARB000162

PATIENT
  Age: 18 Month
  Sex: Female

DRUGS (1)
  1. AMPHETAMINE SULFATE. [Suspect]
     Active Substance: AMPHETAMINE SULFATE
     Indication: PRODUCT USED FOR UNKNOWN INDICATION
     Dosage: UNK
     Route: 015

REACTIONS (9)
  - Apnoea [Unknown]
  - Congenital central hypoventilation syndrome [Unknown]
  - Foetal growth restriction [Unknown]
  - Low birth weight baby [Unknown]
  - Hypoxia [Unknown]
  - Perinatal HIV infection [Unknown]
  - Drug withdrawal syndrome neonatal [Unknown]
  - Premature baby [Unknown]
  - Respiratory failure [Unknown]
